FAERS Safety Report 8505713-8 (Version None)
Quarter: 2012Q3

REPORT INFORMATION
  Report Type: 
  Country: None (occurrence: None)
  Receive Date: 20120706
  Receipt Date: 20120706
  Transmission Date: 20120928
  Serious: Yes (Death)
  Sender: FDA-Public Use
  Company Number: None

PATIENT
  Sex: Female
  Weight: 63.5036 kg

DRUGS (1)
  1. VYVANSE [Suspect]
     Indication: ATTENTION DEFICIT/HYPERACTIVITY DISORDER
     Dosage: 60MG ONCE A DAY PO
     Route: 048

REACTIONS (4)
  - MITRAL VALVE PROLAPSE [None]
  - OVERDOSE [None]
  - SUDDEN DEATH [None]
  - TOXICITY TO VARIOUS AGENTS [None]
